FAERS Safety Report 5499724-7 (Version None)
Quarter: 2007Q4

REPORT INFORMATION
  Report Type: 
  Country: None (occurrence: None)
  Receive Date: 20071026
  Receipt Date: 20071015
  Transmission Date: 20080405
  Serious: Yes (Disabling, Other)
  Sender: FDA-Public Use
  Company Number: GB-PFIZER INC-2007063973

PATIENT
  Age: 57 Year
  Sex: Male
  Weight: 99.5 kg

DRUGS (6)
  1. CHAMPIX [Suspect]
     Indication: SMOKING CESSATION THERAPY
     Route: 048
  2. RAMIPRIL [Concomitant]
     Dosage: DAILY DOSE:5MG-TEXT:DAILY
  3. ACETYLSALICYLIC ACID SRT [Concomitant]
     Dosage: DAILY DOSE:75MG-TEXT:DAILY
  4. SIMVASTATIN [Concomitant]
     Dosage: DAILY DOSE:10MG-TEXT:DAILY AT NIGHT
  5. GLICLAZIDE [Concomitant]
  6. ROSIGLITAZONE MALEATE [Concomitant]
     Dosage: DAILY DOSE:8MG-TEXT:DAILY IN THE MORNING

REACTIONS (4)
  - BLOOD GLUCOSE ABNORMAL [None]
  - HEADACHE [None]
  - MALAISE [None]
  - NAUSEA [None]
